FAERS Safety Report 7369108-5 (Version None)
Quarter: 2011Q1

REPORT INFORMATION
  Report Type: 
  Country: None (occurrence: None)
  Receive Date: 20110323
  Receipt Date: 20110204
  Transmission Date: 20110831
  Serious: Yes (Other)
  Sender: FDA-Public Use
  Company Number: A0911988A

PATIENT
  Age: 72 Year
  Sex: Male

DRUGS (8)
  1. ARZERRA [Suspect]
     Dosage: 2000MG AT NIGHT
     Route: 042
     Dates: start: 20110114, end: 20110101
  2. METOPROLOL TARTRATE [Concomitant]
  3. COMPAZINE [Concomitant]
  4. BACTRIM [Concomitant]
  5. SINEMET [Concomitant]
  6. FOLIC ACID [Concomitant]
  7. UNSPECIFIED MEDICATION [Concomitant]
  8. PRAVASTATIN [Concomitant]

REACTIONS (3)
  - NEUTROPENIA [None]
  - LEUKOPENIA [None]
  - NEUTROPHIL COUNT DECREASED [None]
